FAERS Safety Report 15641888 (Version 2)
Quarter: 2019Q1

REPORT INFORMATION
  Report Type: Spontaneous
  Country: SI (occurrence: SI)
  Receive Date: 20181121
  Receipt Date: 20190219
  Transmission Date: 20190417
  Serious: Yes (Other)
  Sender: FDA-Public Use
  Company Number: SI-AMGEN-SVNSP2018163063

PATIENT
  Age: 45 Year
  Sex: Female

DRUGS (7)
  1. NPLATE [Suspect]
     Active Substance: ROMIPLOSTIM
     Dosage: UNK
     Route: 065
     Dates: start: 201703, end: 201710
  2. NPLATE [Suspect]
     Active Substance: ROMIPLOSTIM
     Dosage: 2 MUG/KG, UNK
     Route: 065
     Dates: start: 2018, end: 2018
  3. NPLATE [Suspect]
     Active Substance: ROMIPLOSTIM
     Indication: IMMUNE THROMBOCYTOPENIC PURPURA
     Dosage: UNK UNK, QWK
     Route: 065
     Dates: start: 201112
  4. NPLATE [Suspect]
     Active Substance: ROMIPLOSTIM
     Dosage: 10 MUG/KG, UNK
     Route: 065
     Dates: start: 201607, end: 201611
  5. NPLATE [Suspect]
     Active Substance: ROMIPLOSTIM
     Dosage: UNK
     Route: 065
     Dates: start: 2015
  6. NPLATE [Suspect]
     Active Substance: ROMIPLOSTIM
     Dosage: 10 MUG/KG, UNK
     Route: 065
     Dates: start: 2018, end: 2018
  7. NPLATE [Suspect]
     Active Substance: ROMIPLOSTIM
     Dosage: 5 MUG/KG, UNK
     Route: 065
     Dates: start: 2018

REACTIONS (4)
  - Hepatotoxicity [Unknown]
  - Platelet count abnormal [Unknown]
  - Therapy non-responder [Unknown]
  - Mucosal haemorrhage [Unknown]

NARRATIVE: CASE EVENT DATE: 2015
